FAERS Safety Report 5368639-7 (Version None)
Quarter: 2007Q2

REPORT INFORMATION
  Report Type: 
  Country: None (occurrence: None)
  Receive Date: 20070625
  Receipt Date: 20070613
  Transmission Date: 20071010
  Serious: Yes (Other)
  Sender: FDA-Public Use
  Company Number: GB-AMGEN-UK229960

PATIENT
  Age: 54 Year
  Sex: Male

DRUGS (7)
  1. CINACALCET [Suspect]
     Indication: DRUG USE FOR UNKNOWN INDICATION
     Route: 048
  2. ASPIRIN [Concomitant]
     Route: 065
  3. CLOPIDOGREL [Concomitant]
     Route: 065
  4. DEXAMETHASONE 0.5MG TAB [Concomitant]
     Route: 065
  5. METOPROLOL SUCCINATE [Concomitant]
     Route: 065
  6. OMEPRAZOLE [Concomitant]
     Route: 065
  7. PHENYTOIN [Concomitant]
     Route: 065

REACTIONS (1)
  - RASH MACULO-PAPULAR [None]
